FAERS Safety Report 6231886-6 (Version None)
Quarter: 2009Q2

REPORT INFORMATION
  Report Type: 
  Country: None (occurrence: None)
  Receive Date: 20090612
  Receipt Date: 20090605
  Transmission Date: 20091009
  Serious: Yes (Death)
  Sender: FDA-Public Use
  Company Number: 2009JP003550

PATIENT
  Age: 52 Year
  Sex: Female

DRUGS (3)
  1. TACROLIMUS [Suspect]
     Indication: LIVER TRANSPLANT
  2. AZATHIOPRINE [Suspect]
     Indication: LIVER TRANSPLANT
  3. PREDNISOLONE [Suspect]
     Indication: LIVER TRANSPLANT

REACTIONS (5)
  - BILIARY CIRRHOSIS PRIMARY [None]
  - COMPLICATIONS OF TRANSPLANTED LIVER [None]
  - DISEASE RECURRENCE [None]
  - METASTASES TO LYMPH NODES [None]
  - METASTATIC MALIGNANT MELANOMA [None]
